FAERS Safety Report 4285248-1 (Version None)
Quarter: 2004Q1

REPORT INFORMATION
  Report Type: 
  Country: None (occurrence: None)
  Receive Date: 20040202
  Receipt Date: 20040122
  Transmission Date: 20041129
  Serious: Yes (Other)
  Sender: FDA-Public Use
  Company Number: AT-JNJFOC-20031204736

PATIENT
  Age: 70 Year
  Sex: Female

DRUGS (6)
  1. REMICADE [Suspect]
     Indication: CROHN'S DISEASE
     Dosage: 300M G, 1 IN 1 DAY, INTRAVENOUS
     Route: 042
     Dates: start: 20031120, end: 20031120
  2. MESALAZINE (MESALAZINE) [Concomitant]
  3. ESOMEPRAZOLE (ESOMEPRAZOLE) TABLETS [Concomitant]
  4. NITROGLYCERINE (GLYCERYL TRINITRATE) [Concomitant]
  5. DIOSMINE (DIOSMIN) TABLETS [Concomitant]
  6. BUDENOSIDE (BUDESONIDE) CAPSULES [Concomitant]

REACTIONS (3)
  - ACID FAST BACILLI INFECTION [None]
  - LYMPHADENOPATHY [None]
  - TUBERCULOSIS [None]
